FAERS Safety Report 6992880-0 (Version None)
Quarter: 2010Q3

REPORT INFORMATION
  Report Type: 
  Country: None (occurrence: None)
  Receive Date: 20100917
  Receipt Date: 20100913
  Transmission Date: 20110219
  Serious: Yes (Death)
  Sender: FDA-Public Use
  Company Number: D0068845A

PATIENT
  Age: 54 Year
  Sex: Male
  Weight: 90 kg

DRUGS (13)
  1. FONDAPARINUX SODIUM [Suspect]
     Indication: THROMBOSIS PROPHYLAXIS
     Dosage: 2.5MG PER DAY
     Route: 058
     Dates: start: 20100809
  2. CERTOPARIN [Suspect]
     Indication: THROMBOSIS PROPHYLAXIS
     Dosage: 3000IU PER DAY
     Route: 058
     Dates: start: 20100727, end: 20100803
  3. HEPARIN [Suspect]
     Indication: PROPHYLAXIS
     Dosage: 12000IU PER DAY
     Route: 042
     Dates: start: 20100804, end: 20100806
  4. CERTOPARIN [Suspect]
     Route: 058
     Dates: start: 20100807, end: 20100808
  5. CIPROFLOXACIN [Concomitant]
     Route: 065
     Dates: start: 20100727, end: 20100809
  6. TRANXILIUM [Concomitant]
     Route: 065
     Dates: start: 20100803, end: 20100803
  7. ASPIRIN [Concomitant]
     Dosage: 100MG PER DAY
     Route: 065
     Dates: start: 20100806, end: 20100809
  8. METOPROLOL [Concomitant]
     Dosage: 50MG TWICE PER DAY
     Route: 065
     Dates: start: 20100805, end: 20100809
  9. METAMIZOL [Concomitant]
     Route: 065
     Dates: start: 20100805, end: 20100806
  10. ACETAMINOPHEN [Concomitant]
     Dosage: 1G PER DAY
     Route: 065
     Dates: start: 20100804, end: 20100805
  11. LORAZEPAM [Concomitant]
     Route: 065
     Dates: start: 20100809
  12. LORMETAZEPAM [Concomitant]
     Route: 065
     Dates: start: 20100807, end: 20100808
  13. FERRO SANOL [Concomitant]
     Route: 065
     Dates: start: 20100805, end: 20100809

REACTIONS (3)
  - ARTERIAL THROMBOSIS [None]
  - HEPARIN-INDUCED THROMBOCYTOPENIA [None]
  - PERIPHERAL ISCHAEMIA [None]
